FAERS Safety Report 11685649 (Version 1)
Quarter: 2015Q4

REPORT INFORMATION
  Report Type: Spontaneous
  Country: IN (occurrence: IN)
  Receive Date: 20151030
  Receipt Date: 20151030
  Transmission Date: 20160304
  Serious: Yes (Other)
  Sender: FDA-Public Use
  Company Number: IN-WATSON-2015-21261

PATIENT
  Age: 55 Year
  Sex: Male

DRUGS (1)
  1. HEPARIN SODIUM (UNKNOWN) [Suspect]
     Active Substance: HEPARIN SODIUM
     Indication: CORONARY ARTERY BYPASS
     Dosage: UNK,10.000 UI INJECTIONS
     Route: 051

REACTIONS (3)
  - Transaminases increased [Recovered/Resolved]
  - Heparin-induced thrombocytopenia [Recovered/Resolved]
  - Acute kidney injury [Recovered/Resolved]
